FAERS Safety Report 18381241 (Version 2)
Quarter: 2020Q4

REPORT INFORMATION
  Report Type: Spontaneous
  Country: US (occurrence: US)
  Receive Date: 20201014
  Receipt Date: 20201022
  Transmission Date: 20210114
  Serious: Yes (Death, Other)
  Sender: FDA-Public Use
  Company Number: US-PFIZER INC-2020395093

PATIENT
  Age: 20 Year
  Sex: Male
  Weight: 39.91 kg

DRUGS (2)
  1. DIAZEPAM. [Suspect]
     Active Substance: DIAZEPAM
     Indication: PAIN IN EXTREMITY
     Dosage: 10 MG, 4X/DAY,EVERY 6 HOURS
     Route: 048
     Dates: start: 19640701, end: 19640707
  2. DIAZEPAM. [Suspect]
     Active Substance: DIAZEPAM
     Indication: MUSCLE SPASMS
     Dosage: 15 MG, 4X/DAY, EVERY 6 HOURS
     Route: 048
     Dates: start: 19640707, end: 19640711

REACTIONS (2)
  - Withdrawal syndrome [Fatal]
  - Hypothalamo-pituitary disorder [Fatal]
